FAERS Safety Report 22384224 (Version 1)
Quarter: 2023Q2

REPORT INFORMATION
  Report Type: Spontaneous
  Country: US (occurrence: US)
  Receive Date: 20230530
  Receipt Date: 20230530
  Transmission Date: 20230722
  Serious: Yes (Hospitalization)
  Sender: FDA-Public Use
  Company Number: US-GLENMARK PHARMACEUTICALS-2023GMK082106

PATIENT

DRUGS (8)
  1. PRAMIPEXOLE DIHYDROCHLORIDE [Suspect]
     Active Substance: PRAMIPEXOLE DIHYDROCHLORIDE
     Indication: Parkinson^s disease
     Dosage: 0.5 MILLIGRAM, TID
     Route: 048
  2. CARBIDOPA LEVODOPA [Concomitant]
     Active Substance: CARBIDOPA\LEVODOPA
     Indication: Parkinson^s disease
     Dosage: 1 DOSAGE FORM, TID
     Route: 048
     Dates: start: 2020
  3. DONEPEZIL [Concomitant]
     Active Substance: DONEPEZIL
     Indication: Parkinson^s disease
     Dosage: 5 MILLIGRAM, QD (HALF TABLET ONCE IN THE EVENING AT 5:30 PM)
     Route: 048
     Dates: start: 2020
  4. LORAZEPAM [Concomitant]
     Active Substance: LORAZEPAM
     Indication: Parkinson^s disease
     Dosage: 0.25 MILLIGRAM, QD (QUARTER TABLET IN THE EVENING)
     Route: 048
     Dates: start: 2020
  5. MEMANTINE [Concomitant]
     Active Substance: MEMANTINE
     Indication: Parkinson^s disease
     Dosage: 0.5 DOSAGE FORM, AM (HALF TABLET EVERY MORNING)
     Route: 048
     Dates: start: 2020
  6. ROSUVASTATIN [Concomitant]
     Active Substance: ROSUVASTATIN
     Indication: Blood cholesterol abnormal
     Dosage: 10 MILLIGRAM, AM
     Route: 048
     Dates: start: 2021
  7. ASPIRIN [Concomitant]
     Active Substance: ASPIRIN
     Indication: Product used for unknown indication
     Dosage: 162 MILLIGRAM, QD (TWO DOSES DAILY)
     Route: 065
  8. VITAMIN C [Concomitant]
     Active Substance: ASCORBIC ACID
     Indication: Product used for unknown indication
     Dosage: 500 MILLIGRAM, OD
     Route: 048

REACTIONS (2)
  - Tremor [Not Recovered/Not Resolved]
  - Product storage error [Unknown]
